FAERS Safety Report 8618251 (Version 2)
Quarter: 2012Q4

REPORT INFORMATION
  Report Type: 
  Country: DE (occurrence: DE)
  Receive Date: 20120615
  Receipt Date: 20121017
  Transmission Date: 20130627
  Serious: Yes (Other)
  Sender: FDA-Public Use
  Company Number: DE-PFIZER INC-2012138430

PATIENT
  Age: 62 Year
  Sex: Female

DRUGS (11)
  1. PACLITAXEL [Suspect]
     Indication: ACRAL LENTIGINOUS MELANOMA STAGE UNSPECIFIED
     Dosage: 200 mg/m2, every 3 weeks
     Route: 042
     Dates: start: 2008
  2. PACLITAXEL [Suspect]
     Indication: METASTASES TO LUNG
  3. PACLITAXEL [Suspect]
     Indication: METASTASES TO SKIN
  4. PACLITAXEL [Suspect]
     Indication: METASTASES TO CENTRAL NERVOUS SYSTEM
  5. PACLITAXEL [Suspect]
     Indication: METASTASES TO LYMPH NODES
  6. CISPLATIN [Suspect]
     Indication: ACRAL LENTIGINOUS MELANOMA STAGE UNSPECIFIED
     Dosage: 50 mg/m2, every 3 weeks
     Route: 042
     Dates: start: 2008
  7. CISPLATIN [Suspect]
     Indication: METASTASES TO LUNG
  8. CISPLATIN [Suspect]
     Indication: METASTASES TO SKIN
  9. CISPLATIN [Suspect]
     Indication: METASTASES TO CENTRAL NERVOUS SYSTEM
  10. CISPLATIN [Suspect]
     Indication: METASTASES TO LYMPH NODES
  11. SORAFENIB [Suspect]
     Indication: ACRAL LENTIGINOUS MELANOMA STAGE UNSPECIFIED
     Dosage: 800 mg, 1x/day
     Route: 048
     Dates: start: 2008

REACTIONS (2)
  - Cystoid macular oedema [Recovered/Resolved]
  - Maculopathy [Recovered/Resolved]
